FAERS Safety Report 4325070-0 (Version None)
Quarter: 2004Q1

REPORT INFORMATION
  Report Type: 
  Country: None (occurrence: None)
  Receive Date: 20040323
  Receipt Date: 20040309
  Transmission Date: 20041129
  Serious: Yes (Death)
  Sender: FDA-Public Use
  Company Number: US-JNJFOC-20030603913

PATIENT
  Age: 44 Year
  Sex: Male
  Weight: 111.1313 kg

DRUGS (11)
  1. ULTRAM [Suspect]
     Indication: DETOXIFICATION
  2. INSULIN [Suspect]
     Indication: WEIGHT CONTROL
  3. ZYRTEC [Concomitant]
  4. ZOLOFT [Concomitant]
  5. GROWTH HORMONE (SOMATROPIN) [Concomitant]
  6. GINKO (GINKGO BILOBA) [Concomitant]
  7. ST JOHNS WART (HERBAL PREPARATION) [Concomitant]
  8. MILK THISTLE (PLANT ALKALOIDS AND OTHER NATURAL PRODUCTS) [Concomitant]
  9. GRAPE SEED EXTRACT (VITIS VINIFERA EXTRACT) [Concomitant]
  10. BODY BUILDING DRUGS (ALL OTHER THERAPEUTIC PRODUCTS) [Concomitant]
  11. LIVER (LIVER EXTRACT) [Concomitant]

REACTIONS (1)
  - HICCUPS [None]
